FAERS Safety Report 10493736 (Version 2)
Quarter: 2014Q4

REPORT INFORMATION
  Report Type: Spontaneous
  Country: US (occurrence: US)
  Receive Date: 20141002
  Receipt Date: 20141216
  Transmission Date: 20150528
  Serious: No
  Sender: FDA-Public Use
  Company Number: US-ELI_LILLY_AND_COMPANY-US201410000855

PATIENT
  Sex: Female
  Weight: 81.63 kg

DRUGS (2)
  1. HUMAN INSULIN (RDNA ORIGIN) LENTE [Suspect]
     Active Substance: INSULIN HUMAN
     Indication: BLOOD GLUCOSE ABNORMAL
     Dosage: UNK
     Route: 065
     Dates: start: 1989
  2. INSULIN HUMAN [Suspect]
     Active Substance: INSULIN HUMAN
     Indication: BLOOD GLUCOSE ABNORMAL
     Dosage: UNK
     Route: 065
     Dates: start: 1989

REACTIONS (3)
  - Glycosylated haemoglobin increased [Unknown]
  - Maternal exposure during pregnancy [Recovered/Resolved]
  - Blood glucose increased [Unknown]
